FAERS Safety Report 20842857 (Version 1)
Quarter: 2022Q2

REPORT INFORMATION
  Report Type: Spontaneous
  Country: US (occurrence: None)
  Receive Date: 20220517
  Receipt Date: 20220517
  Transmission Date: 20220721
  Serious: Yes (Hospitalization)
  Sender: FDA-Public Use
  Company Number: None

PATIENT
  Sex: Female
  Weight: 33.3 kg

DRUGS (4)
  1. MERCAPTOPURINE [Suspect]
     Active Substance: MERCAPTOPURINE
     Dates: end: 20220512
  2. METHOTREXATE [Suspect]
     Active Substance: METHOTREXATE
     Indication: Product used for unknown indication
     Dates: end: 20220509
  3. VINCRISTINE SULFATE [Suspect]
     Active Substance: VINCRISTINE SULFATE
     Indication: Product used for unknown indication
     Dates: end: 20220321
  4. DEXAMETHASONE [Suspect]
     Active Substance: DEXAMETHASONE
     Indication: Product used for unknown indication
     Dates: end: 20220326

REACTIONS (17)
  - Haematemesis [None]
  - Tachypnoea [None]
  - Jaundice [None]
  - Lactic acidosis [None]
  - Coagulopathy [None]
  - Acute kidney injury [None]
  - Hyperbilirubinaemia [None]
  - Acute hepatic failure [None]
  - Mental status changes [None]
  - Hypotension [None]
  - Bacterial infection [None]
  - Escherichia test positive [None]
  - Urinary tract candidiasis [None]
  - Urinary tract infection [None]
  - Sepsis [None]
  - Liver injury [None]
  - Therapy interrupted [None]

NARRATIVE: CASE EVENT DATE: 20220512
